FAERS Safety Report 4585227-0 (Version None)
Quarter: 2005Q1

REPORT INFORMATION
  Report Type: 
  Country: None (occurrence: None)
  Receive Date: 20050217
  Receipt Date: 20050126
  Transmission Date: 20050727
  Serious: No
  Sender: FDA-Public Use
  Company Number: US-GLAXOSMITHKLINE-A0542425A

PATIENT
  Age: 22 Year

DRUGS (2)
  1. WELLBUTRIN XL [Suspect]
     Indication: DEPRESSION
     Dosage: 300MG PER DAY
     Route: 048
     Dates: end: 20050123
  2. NO CONCURRENT MEDICATION [Concomitant]

REACTIONS (6)
  - AGITATION [None]
  - ENERGY INCREASED [None]
  - INSOMNIA [None]
  - SOMNOLENCE [None]
  - TINNITUS [None]
  - TREMOR [None]
